FAERS Safety Report 6595102-8 (Version None)
Quarter: 2010Q1

REPORT INFORMATION
  Report Type: 
  Country: None (occurrence: None)
  Receive Date: 20100212
  Receipt Date: 20100208
  Transmission Date: 20100710
  Serious: Yes (Other)
  Sender: FDA-Public Use
  Company Number: 2009SP042177

PATIENT
  Age: 65 Year
  Sex: Male

DRUGS (12)
  1. MIRTAZAPINE [Suspect]
     Indication: DEPRESSION
     Dosage: 15 MG; QD; PO
     Route: 048
     Dates: start: 20091029, end: 20091220
  2. BROMAZEPAM [Concomitant]
  3. AMLODIPINE BESYLATE [Concomitant]
  4. ASPIRIN [Concomitant]
  5. DIGOXIN [Concomitant]
  6. BROMAZEPAM [Concomitant]
  7. TRIAZOLAM [Concomitant]
  8. DIMETHICONE [Concomitant]
  9. MAGNESIUM OXIDE [Concomitant]
  10. FUROSEMIDE [Concomitant]
  11. OLMESARTAN MEDOXOMIL [Concomitant]
  12. DIGOXIN [Concomitant]

REACTIONS (5)
  - ASCITES [None]
  - ATRIAL FIBRILLATION [None]
  - CARDIAC HYPERTROPHY [None]
  - OEDEMA PERIPHERAL [None]
  - WEIGHT INCREASED [None]
